FAERS Safety Report 7455656-6 (Version None)
Quarter: 2011Q2

REPORT INFORMATION
  Report Type: 
  Country: None (occurrence: None)
  Receive Date: 20110503
  Receipt Date: 20110428
  Transmission Date: 20111010
  Serious: Yes (Death)
  Sender: FDA-Public Use
  Company Number: DE-ROCHE-774416

PATIENT
  Sex: Male
  Weight: 62 kg

DRUGS (4)
  1. OXALIPLATIN [Concomitant]
     Dates: start: 20101215, end: 20110131
  2. LEUCOVORIN CALCIUM [Concomitant]
     Dates: start: 20101215, end: 20110131
  3. FLUOROURACIL [Concomitant]
     Dates: start: 20101215, end: 20110131
  4. BEVACIZUMAB [Suspect]
     Route: 065
     Dates: start: 20101215, end: 20110131

REACTIONS (2)
  - NEOPLASM MALIGNANT [None]
  - NO THERAPEUTIC RESPONSE [None]
